FAERS Safety Report 8587002-9 (Version None)
Quarter: 2012Q3

REPORT INFORMATION
  Report Type: 
  Country: None (occurrence: None)
  Receive Date: 20120810
  Receipt Date: 20120803
  Transmission Date: 20120928
  Serious: Yes (Other)
  Sender: FDA-Public Use
  Company Number: DE-ABBOTT-12P-062-0960680-00

PATIENT
  Age: 16 Year
  Sex: Female

DRUGS (10)
  1. ACYCLOVIR [Concomitant]
     Indication: PRODUCT USED FOR UNKNOWN INDICATION
  2. DEXAMETHASONE [Concomitant]
     Indication: HISTIOCYTOSIS HAEMATOPHAGIC
  3. AZATHIOPRINE SODIUM [Concomitant]
     Indication: CROHN'S DISEASE
  4. ETOPOSIDE [Concomitant]
     Indication: HISTIOCYTOSIS HAEMATOPHAGIC
  5. CYCLOSPORINE [Suspect]
     Indication: HISTIOCYTOSIS HAEMATOPHAGIC
  6. MESALAMINE [Concomitant]
     Indication: CROHN'S DISEASE
  7. PREDNISOLONE [Concomitant]
     Indication: LYMPHOPROLIFERATIVE DISORDER
  8. CYCLOPHOSPHAMIDE [Concomitant]
     Indication: LYMPHOPROLIFERATIVE DISORDER
  9. PREDNISONE TAB [Concomitant]
     Indication: CROHN'S DISEASE
  10. RITUXIMAB [Concomitant]
     Indication: LYMPHOPROLIFERATIVE DISORDER

REACTIONS (1)
  - POSTERIOR REVERSIBLE ENCEPHALOPATHY SYNDROME [None]
